FAERS Safety Report 8904347 (Version 1)
Quarter: 2012Q4

REPORT INFORMATION
  Report Type: Report from Study
  Country: GB (occurrence: GB)
  Receive Date: 20121112
  Receipt Date: 20121112
  Transmission Date: 20130627
  Serious: Yes (Death)
  Sender: FDA-Public Use
  Company Number: GB-AMGEN-GBRCT2011059547

PATIENT
  Age: 64 Year
  Sex: Female

DRUGS (8)
  1. ETANERCEPT [Suspect]
     Indication: RHEUMATOID ARTHRITIS
     Dosage: 25 mg, 2 times/wk
     Dates: start: 20030610
  2. OMEPRAZOLE [Concomitant]
     Dosage: 20 mg, UNK
  3. PREDNISOLONE [Concomitant]
     Dosage: 15 mg, UNK
  4. ORAMORPH [Concomitant]
     Dosage: 5 mg, 4x/day
  5. AMLODIPINE [Concomitant]
     Dosage: 5 mg, UNK
  6. CALCICHEW [Concomitant]
     Dosage: UNK
  7. SYMBICORT [Concomitant]
     Dosage: UNK
  8. SULFAMETHOXAZOLE W/TRIMETHOPRIM [Concomitant]
     Dosage: UNK

REACTIONS (5)
  - Pulmonary fibrosis [Fatal]
  - Myocardial infarction [Fatal]
  - Chronic obstructive pulmonary disease [Fatal]
  - Rheumatoid arthritis [Fatal]
  - Pneumonia [Fatal]
